FAERS Safety Report 8272589-6 (Version None)
Quarter: 2012Q2

REPORT INFORMATION
  Report Type: 
  Country: None (occurrence: None)
  Receive Date: 20120410
  Receipt Date: 20120403
  Transmission Date: 20120825
  Serious: Yes (Hospitalization)
  Sender: FDA-Public Use
  Company Number: US-ALLERGAN-1203702US

PATIENT
  Age: 46 Year
  Sex: Female

DRUGS (5)
  1. BOTULINUM TOXIN TYPE A [Suspect]
     Indication: MIGRAINE
     Dosage: 150 UNITS, SINGLE
     Route: 030
     Dates: start: 20120301, end: 20120301
  2. BOTULINUM TOXIN TYPE A [Suspect]
     Dosage: UNK
     Dates: start: 20110728, end: 20110728
  3. BOTULINUM TOXIN TYPE A [Suspect]
     Dosage: UNK
     Dates: start: 20110428, end: 20110428
  4. MAXALT [Concomitant]
     Indication: HEADACHE
     Dosage: 10 MG, PRN
     Route: 048
  5. BOTULINUM TOXIN TYPE A [Suspect]
     Dosage: UNK
     Dates: start: 20111117, end: 20111117

REACTIONS (6)
  - BURNING SENSATION [None]
  - ASTHENIA [None]
  - RENAL PAIN [None]
  - DYSPNOEA [None]
  - BACK PAIN [None]
  - MYALGIA [None]
